FAERS Safety Report 23869368 (Version 1)
Quarter: 2024Q2

REPORT INFORMATION
  Report Type: Report from Study
  Country: ES (occurrence: ES)
  Receive Date: 20240517
  Receipt Date: 20240517
  Transmission Date: 20240716
  Serious: Yes (Hospitalization)
  Sender: FDA-Public Use
  Company Number: None

PATIENT
  Age: 35 Year
  Sex: Male

DRUGS (6)
  1. TOPAMAX [Suspect]
     Active Substance: TOPIRAMATE
     Indication: Epilepsy
     Route: 048
     Dates: start: 200808
  2. OLANZAPINE [Suspect]
     Active Substance: OLANZAPINE
     Indication: Epilepsy
     Route: 048
     Dates: start: 20120612
  3. LITHIUM CARBONATE [Suspect]
     Active Substance: LITHIUM CARBONATE
     Indication: Autism spectrum disorder
     Route: 048
     Dates: start: 201212, end: 20240208
  4. TRAZODONE HYDROCHLORIDE [Concomitant]
     Active Substance: TRAZODONE HYDROCHLORIDE
     Indication: Epilepsy
     Route: 048
     Dates: start: 200808
  5. VIMPAT [Concomitant]
     Active Substance: LACOSAMIDE
     Indication: Epilepsy
     Route: 048
     Dates: start: 20120612
  6. VALPROIC ACID [Concomitant]
     Active Substance: VALPROIC ACID
     Indication: Epilepsy
     Route: 048
     Dates: start: 200808

REACTIONS (4)
  - Toxicity to various agents [Recovered/Resolved]
  - Apathy [Recovered/Resolved]
  - Decreased appetite [Recovered/Resolved]
  - Asthenia [Recovered/Resolved]

NARRATIVE: CASE EVENT DATE: 20240209
